FAERS Safety Report 13186789 (Version 1)
Quarter: 2017Q1

REPORT INFORMATION
  Report Type: Spontaneous
  Country: GB (occurrence: GB)
  Receive Date: 20170206
  Receipt Date: 20170206
  Transmission Date: 20170428
  Serious: Yes (Death)
  Sender: FDA-Public Use
  Company Number: GB-CONCORDIA PHARMACEUTICALS INC.-GSH201702-000749

PATIENT
  Age: 66 Year
  Sex: Female

DRUGS (3)
  1. PREDNISOLONE. [Suspect]
     Active Substance: PREDNISOLONE
  2. DEXIMUNE [Suspect]
     Active Substance: CYCLOSPORINE
  3. AZATHIOPRINE. [Suspect]
     Active Substance: AZATHIOPRINE

REACTIONS (1)
  - Death [Fatal]
